FAERS Safety Report 13301358 (Version 1)
Quarter: 2017Q1

REPORT INFORMATION
  Report Type: Spontaneous
  Country: US (occurrence: US)
  Receive Date: 20170307
  Receipt Date: 20170307
  Transmission Date: 20170428
  Serious: Yes (Other)
  Sender: FDA-Public Use
  Company Number: None

PATIENT
  Age: 30 Year
  Sex: Female
  Weight: 60.2 kg

DRUGS (3)
  1. SHELDY [Suspect]
     Active Substance: CABERGOLINE
     Indication: HYPERPROLACTINAEMIA
     Dosage: ?          QUANTITY:1 TABLET(S);OTHER FREQUENCY:TWO TIMES AT WEEK.;?
     Route: 048
     Dates: start: 20170216
  2. ACENOCUMAROL (SINTROM) MISDRAPE RAC 1 [Concomitant]
  3. VITAMINA A [Concomitant]

REACTIONS (2)
  - Depersonalisation/derealisation disorder [None]
  - Panic reaction [None]

NARRATIVE: CASE EVENT DATE: 20170306
